FAERS Safety Report 6269770-4 (Version None)
Quarter: 2009Q3

REPORT INFORMATION
  Report Type: 
  Country: None (occurrence: None)
  Receive Date: 20090716
  Receipt Date: 20090529
  Transmission Date: 20100115
  Serious: Yes (Other)
  Sender: FDA-Public Use
  Company Number: IT-JNJFOC-20090702072

PATIENT
  Age: 56 Year
  Sex: Male

DRUGS (9)
  1. ITRACONAZOLE [Suspect]
     Route: 048
  2. ITRACONAZOLE [Suspect]
     Route: 048
  3. ITRACONAZOLE [Suspect]
     Route: 048
  4. ITRACONAZOLE [Suspect]
     Route: 048
  5. ITRACONAZOLE [Suspect]
     Indication: DRUG USE FOR UNKNOWN INDICATION
     Route: 048
  6. CIPROFLOXACIN [Suspect]
     Indication: DRUG USE FOR UNKNOWN INDICATION
     Route: 065
  7. CYCLOSPORINE [Concomitant]
  8. AZATHIOPRINE [Concomitant]
  9. METHYLPREDNISOLONE [Concomitant]

REACTIONS (2)
  - DRUG RESISTANCE [None]
  - HEPATITIS CHOLESTATIC [None]
